FAERS Safety Report 7938089-5 (Version None)
Quarter: 2011Q4

REPORT INFORMATION
  Report Type: 
  Country: None (occurrence: None)
  Receive Date: 20111123
  Receipt Date: 20111115
  Transmission Date: 20120403
  Serious: Yes (Other)
  Sender: FDA-Public Use
  Company Number: IN-PFIZER INC-2011208141

PATIENT
  Age: 28 Year
  Sex: Female

DRUGS (5)
  1. RISPERIDONE [Concomitant]
     Indication: BIPOLAR DISORDER
     Dosage: 3 MG, 1X/DAY
     Dates: start: 20091101
  2. HALOPERIDOL [Concomitant]
     Dosage: UNK
  3. VALPROIC ACID [Suspect]
     Indication: BIPOLAR DISORDER
     Dosage: 1000 MG/DAY
     Route: 065
     Dates: start: 20091101
  4. LITHIUM [Concomitant]
     Dosage: UNK
  5. VALPROIC ACID [Suspect]
     Dosage: 750 MG, 1X/DAY

REACTIONS (2)
  - WHITE BLOOD CELL COUNT DECREASED [None]
  - NEUTROPENIA [None]
